FAERS Safety Report 5223989-X (Version None)
Quarter: 2007Q1

REPORT INFORMATION
  Report Type: 
  Country: None (occurrence: None)
  Receive Date: 20070130
  Receipt Date: 20070129
  Transmission Date: 20070707
  Serious: Yes (Hospitalization)
  Sender: FDA-Public Use
  Company Number: FR-GLAXOSMITHKLINE-B0456085A

PATIENT
  Age: 79 Year
  Sex: Female

DRUGS (4)
  1. CLAMOXYL [Suspect]
     Route: 048
     Dates: start: 20061230, end: 20061231
  2. PROPOFOL [Concomitant]
     Dosage: 2UNIT AS REQUIRED
     Route: 065
  3. ASPIRIN [Concomitant]
     Dosage: 300MG PER DAY
     Route: 065
  4. LACTULOSE [Concomitant]
     Route: 065

REACTIONS (4)
  - ACUTE GENERALISED EXANTHEMATOUS PUSTULOSIS [None]
  - HEPATOCELLULAR DAMAGE [None]
  - RENAL FAILURE ACUTE [None]
  - TOXIC EPIDERMAL NECROLYSIS [None]
